FAERS Safety Report 9518473 (Version 1)
Quarter: 2013Q3

REPORT INFORMATION
  Report Type: Spontaneous
  Country: RU (occurrence: RU)
  Receive Date: 20130912
  Receipt Date: 20130912
  Transmission Date: 20140515
  Serious: Yes (Hospitalization)
  Sender: FDA-Public Use
  Company Number: RU-009507513-1309RUS004078

PATIENT
  Age: 3 Year
  Sex: 0

DRUGS (3)
  1. SINGULAIR [Suspect]
     Indication: ASTHMA
     Dosage: UNK
     Route: 048
  2. PULMICORT [Concomitant]
     Indication: ASTHMA
     Dosage: ONE TO ONE RATIO WITH PHYSIOLOGICAL SOLUTION, BID, 7O^ CLOCK DURING A HALF OF A YEAR
  3. SODIUM CHLORIDE [Concomitant]
     Indication: ASTHMA
     Dosage: ONE TO ONE RATIO WITH PULMICORT, BID, 7O^ CLOCK DURING A HALF OF A YEAR

REACTIONS (7)
  - Adverse event [Unknown]
  - Adverse event [Recovered/Resolved]
  - Hallucination [Recovered/Resolved]
  - Muscle spasms [Recovered/Resolved]
  - Flank pain [Recovered/Resolved]
  - Poor quality sleep [Recovered/Resolved]
  - Viral infection [Unknown]
